FAERS Safety Report 19647092 (Version 1)
Quarter: 2021Q3

REPORT INFORMATION
  Report Type: Spontaneous
  Country: IL (occurrence: IL)
  Receive Date: 20210802
  Receipt Date: 20210802
  Transmission Date: 20211014
  Serious: Yes (Hospitalization)
  Sender: FDA-Public Use
  Company Number: IL-AMNEAL PHARMACEUTICALS-2021-AMRX-03052

PATIENT
  Age: 19 Year
  Sex: Male

DRUGS (1)
  1. MINOCYCLINE HYDROCHLORIDE. [Suspect]
     Active Substance: MINOCYCLINE HYDROCHLORIDE
     Indication: ACNE
     Dosage: 100 MILLIGRAM, 2 /DAY
     Route: 065

REACTIONS (2)
  - Acute kidney injury [Recovered/Resolved]
  - Polyarteritis nodosa [Recovered/Resolved]
